FAERS Safety Report 10240131 (Version 3)
Quarter: 2014Q4

REPORT INFORMATION
  Report Type: Spontaneous
  Country: IT (occurrence: IT)
  Receive Date: 20140617
  Receipt Date: 20141022
  Transmission Date: 20150528
  Serious: Yes (Hospitalization, Other)
  Sender: FDA-Public Use
  Company Number: IT-ROCHE-1419275

PATIENT
  Age: 49 Year
  Sex: Female

DRUGS (13)
  1. SERETIDE [Concomitant]
     Active Substance: FLUTICASONE FUROATE\SALMETEROL XINAFOATE
     Dosage: 50/500
     Route: 065
  2. CAPTOPRIL. [Concomitant]
     Active Substance: CAPTOPRIL
  3. OMEPRAZOLE. [Concomitant]
     Active Substance: OMEPRAZOLE
     Route: 065
  4. ASA [Concomitant]
     Active Substance: ASPIRIN
     Route: 065
  5. MONTELUKAST SODIUM. [Concomitant]
     Active Substance: MONTELUKAST SODIUM
  6. XOLAIR [Suspect]
     Active Substance: OMALIZUMAB
     Route: 058
     Dates: start: 20140509
  7. XOLAIR [Suspect]
     Active Substance: OMALIZUMAB
     Route: 058
     Dates: start: 20140606
  8. OMEPRAZOLE. [Concomitant]
     Active Substance: OMEPRAZOLE
     Route: 065
  9. XOLAIR [Suspect]
     Active Substance: OMALIZUMAB
     Indication: ASTHMA
     Route: 058
     Dates: start: 201203
  10. XOLAIR [Suspect]
     Active Substance: OMALIZUMAB
     Route: 058
     Dates: start: 20140404
  11. RAMIPRIL. [Concomitant]
     Active Substance: RAMIPRIL
  12. XOLAIR [Suspect]
     Active Substance: OMALIZUMAB
     Route: 058
     Dates: start: 20140708
  13. XOLAIR [Suspect]
     Active Substance: OMALIZUMAB
     Route: 058
     Dates: start: 20121228

REACTIONS (14)
  - Supraventricular tachycardia [Recovered/Resolved]
  - Depressed mood [Unknown]
  - Dyspnoea [Unknown]
  - Blood glucose increased [Unknown]
  - Palpitations [Recovered/Resolved]
  - Asthma [Unknown]
  - Myocardial necrosis [Unknown]
  - Angina pectoris [Unknown]
  - Mitral valve incompetence [Unknown]
  - Asthenia [Unknown]
  - Hypertension [Unknown]
  - Anxiety [Recovering/Resolving]
  - Agitation [Unknown]
  - Troponin increased [Unknown]

NARRATIVE: CASE EVENT DATE: 201203
